FAERS Safety Report 11614116 (Version 1)
Quarter: 2015Q4

REPORT INFORMATION
  Report Type: Spontaneous
  Country: FR (occurrence: FR)
  Receive Date: 20151008
  Receipt Date: 20151008
  Transmission Date: 20160304
  Serious: No
  Sender: FDA-Public Use
  Company Number: FR-TAKEDA-THQ2011A00548

PATIENT
  Age: 62 Year
  Sex: Male

DRUGS (1)
  1. LANZOR [Suspect]
     Active Substance: LANSOPRAZOLE
     Route: 048

REACTIONS (1)
  - Uveitis [Not Recovered/Not Resolved]
